FAERS Safety Report 8439274-9 (Version None)
Quarter: 2012Q2

REPORT INFORMATION
  Report Type: 
  Country: None (occurrence: None)
  Receive Date: 20120615
  Receipt Date: 20120612
  Transmission Date: 20120825
  Serious: Yes (Death)
  Sender: FDA-Public Use
  Company Number: CN-ASTELLAS-2012JP005335

PATIENT
  Age: 38 Year
  Sex: Male

DRUGS (3)
  1. PREDNISONE [Concomitant]
     Route: 065
  2. MYCOPHENOLATE MOFETIL [Concomitant]
     Route: 065
  3. TACROLIMUS [Suspect]
     Indication: RENAL TRANSPLANT
     Dosage: UNK
     Route: 048
     Dates: start: 20040603, end: 20070601

REACTIONS (1)
  - DEATH [None]
